FAERS Safety Report 5527736-3 (Version None)
Quarter: 2007Q4

REPORT INFORMATION
  Report Type: 
  Country: None (occurrence: None)
  Receive Date: 20071128
  Receipt Date: 20071114
  Transmission Date: 20080405
  Serious: Yes (Other)
  Sender: FDA-Public Use
  Company Number: US-ELI_LILLY_AND_COMPANY-US200709002990

PATIENT
  Sex: Female

DRUGS (6)
  1. BYETTA [Suspect]
     Dosage: 5 UG, 2/D
     Route: 058
     Dates: start: 20070401
  2. METFORMIN HCL [Concomitant]
     Dosage: 750 MG, 2/D
     Route: 048
  3. NOVOLOG MIX 70/30 [Concomitant]
     Dosage: UNK, 2/D
     Route: 058
  4. COUMADIN [Concomitant]
     Dosage: 5 MG, OTHER
     Route: 048
     Dates: end: 20070901
  5. COUMADIN [Concomitant]
     Dosage: 7.5 MG, OTHER
     Route: 048
     Dates: end: 20070901
  6. COUMADIN [Concomitant]
     Dosage: 2.5 MG, DAILY (1/D)
     Route: 048
     Dates: start: 20070901

REACTIONS (4)
  - DERMATITIS CONTACT [None]
  - INTERNATIONAL NORMALISED RATIO INCREASED [None]
  - OVARIAN CANCER [None]
  - SINUSITIS [None]
